FAERS Safety Report 5465604-6 (Version None)
Quarter: 2007Q3

REPORT INFORMATION
  Report Type: 
  Country: None (occurrence: None)
  Receive Date: 20070924
  Receipt Date: 20070919
  Transmission Date: 20080115
  Serious: Yes (Death)
  Sender: FDA-Public Use
  Company Number: JP-AVENTIS-200712498JP

PATIENT
  Age: 70 Year
  Sex: Female

DRUGS (3)
  1. TAXOTERE [Suspect]
     Route: 041
  2. TAXOTERE [Suspect]
     Indication: METASTASES TO BONE
     Route: 041
  3. ZOMETA [Concomitant]
     Indication: METASTASES TO BONE

REACTIONS (1)
  - INTERSTITIAL LUNG DISEASE [None]
